FAERS Safety Report 5781977-9 (Version None)
Quarter: 2008Q2

REPORT INFORMATION
  Report Type: 
  Country: None (occurrence: None)
  Receive Date: 20080623
  Receipt Date: 20080312
  Transmission Date: 20081010
  Serious: No
  Sender: FDA-Public Use
  Company Number: US-ASTRAZENECA-2008UW06970

PATIENT
  Age: 56 Year
  Sex: Female

DRUGS (2)
  1. RHINOCORT [Suspect]
     Indication: MULTIPLE ALLERGIES
     Dosage: 2 SPRAYS
     Route: 045
     Dates: start: 20080111, end: 20080209
  2. RHINOCORT [Suspect]
     Dosage: 2 SPRAYS
     Route: 045
     Dates: start: 20080303

REACTIONS (4)
  - COUGH [None]
  - DRUG INEFFECTIVE [None]
  - RHINORRHOEA [None]
  - THROAT IRRITATION [None]
